FAERS Safety Report 6588713-7 (Version None)
Quarter: 2010Q1

REPORT INFORMATION
  Report Type: 
  Country: None (occurrence: None)
  Receive Date: 20100218
  Receipt Date: 20100203
  Transmission Date: 20100710
  Serious: No
  Sender: FDA-Public Use
  Company Number: US-JNJFOC-20100103299

PATIENT
  Sex: Male
  Weight: 90.72 kg

DRUGS (14)
  1. DURAGESIC-100 [Suspect]
     Indication: BONE PAIN
     Route: 062
  2. DURAGESIC-100 [Suspect]
     Route: 062
  3. DURAGESIC-100 [Suspect]
     Route: 062
  4. DURAGESIC-100 [Suspect]
     Indication: FACE INJURY
     Route: 062
  5. DURAGESIC-100 [Suspect]
     Route: 062
  6. DURAGESIC-100 [Suspect]
     Route: 062
  7. DURAGESIC-100 [Suspect]
     Indication: BACK PAIN
     Route: 062
  8. DURAGESIC-100 [Suspect]
     Route: 062
  9. DURAGESIC-100 [Suspect]
     Route: 062
  10. DURAGESIC-100 [Suspect]
     Indication: FACIAL PAIN
     Route: 062
  11. DURAGESIC-100 [Suspect]
     Route: 062
  12. DURAGESIC-100 [Suspect]
     Route: 062
  13. GRAPE JUICE [Interacting]
     Indication: DRUG USE FOR UNKNOWN INDICATION
  14. KLONOPIN [Concomitant]
     Route: 048

REACTIONS (8)
  - DRUG DOSE OMISSION [None]
  - DRUG INEFFECTIVE [None]
  - DRUG INTERACTION [None]
  - HEAD TITUBATION [None]
  - INAPPROPRIATE SCHEDULE OF DRUG ADMINISTRATION [None]
  - JOINT SWELLING [None]
  - PRODUCT ADHESION ISSUE [None]
  - WRONG TECHNIQUE IN DRUG USAGE PROCESS [None]
